FAERS Safety Report 19106968 (Version 3)
Quarter: 2021Q3

REPORT INFORMATION
  Report Type: Report from Study
  Country: US (occurrence: US)
  Receive Date: 20210408
  Receipt Date: 20210728
  Transmission Date: 20211014
  Serious: Yes (Hospitalization, Other)
  Sender: FDA-Public Use
  Company Number: US-BAUSCH-BL-2021-004260

PATIENT
  Age: 52 Year
  Sex: Male
  Weight: 95.34 kg

DRUGS (2)
  1. XIFAXAN [Suspect]
     Active Substance: RIFAXIMIN
     Indication: HEPATIC ENCEPHALOPATHY
     Dosage: STARTED OCTOBER OR NOVEMBER (UNSPECIFIED YEAR)
     Route: 048
     Dates: end: 202101
  2. XIFAXAN [Suspect]
     Active Substance: RIFAXIMIN
     Indication: HEPATIC CIRRHOSIS
     Route: 048
     Dates: start: 2021

REACTIONS (11)
  - Hospitalisation [Unknown]
  - Abdominal distension [Unknown]
  - Therapy interrupted [Unknown]
  - Aneurysm [Unknown]
  - Ascites [Unknown]
  - Weight decreased [Unknown]
  - Abdominal pain upper [Unknown]
  - Product availability issue [Unknown]
  - Hernia [Unknown]
  - Malaise [Not Recovered/Not Resolved]
  - Abdominal pain [Unknown]

NARRATIVE: CASE EVENT DATE: 202101
